FAERS Safety Report 6104849-9 (Version None)
Quarter: 2009Q1

REPORT INFORMATION
  Report Type: 
  Country: None (occurrence: None)
  Receive Date: 20090306
  Receipt Date: 20090225
  Transmission Date: 20090719
  Serious: Yes (Life-Threatening)
  Sender: FDA-Public Use
  Company Number: JP-BAYER-200910536BYL

PATIENT
  Age: 78 Year
  Sex: Female
  Weight: 46 kg

DRUGS (9)
  1. NEXAVAR [Suspect]
     Indication: RENAL CELL CARCINOMA STAGE IV
     Dosage: TOTAL DAILY DOSE: 800 MG  UNIT DOSE: 200 MG
     Route: 048
     Dates: start: 20090129, end: 20090214
  2. INTERFERON ALFA [Suspect]
     Indication: DRUG USE FOR UNKNOWN INDICATION
     Route: 065
  3. PROLEUKIN [Suspect]
     Indication: DRUG USE FOR UNKNOWN INDICATION
     Route: 065
  4. TAGAMET [Concomitant]
     Route: 048
     Dates: start: 20090129, end: 20090212
  5. MOBIC [Concomitant]
     Route: 048
     Dates: start: 20090129, end: 20090212
  6. FERRUM [Concomitant]
     Route: 048
     Dates: start: 20090129, end: 20090212
  7. BLOPRESS [Concomitant]
     Route: 048
     Dates: start: 20090129, end: 20090212
  8. NORVASC [Concomitant]
     Route: 048
     Dates: start: 20090129, end: 20090212
  9. OIF [Concomitant]
     Route: 030
     Dates: start: 20090130, end: 20090212

REACTIONS (3)
  - PALMAR-PLANTAR ERYTHRODYSAESTHESIA SYNDROME [None]
  - STEVENS-JOHNSON SYNDROME [None]
  - STOMATITIS [None]
